FAERS Safety Report 4350918-3 (Version None)
Quarter: 2004Q2

REPORT INFORMATION
  Report Type: 
  Country: None (occurrence: None)
  Receive Date: 20040430
  Receipt Date: 20031029
  Transmission Date: 20050107
  Serious: Yes (Death)
  Sender: FDA-Public Use
  Company Number: US-GLAXOSMITHKLINE-B0313828A

PATIENT
  Age: 25 Year
  Sex: Female

DRUGS (2)
  1. BUPROPION HCL [Suspect]
     Route: 048
  2. VENLAFAXINE [Suspect]
     Route: 048

REACTIONS (7)
  - AGITATION [None]
  - COMPLETED SUICIDE [None]
  - CONVULSION [None]
  - HAEMODYNAMIC INSTABILITY [None]
  - HOSTILITY [None]
  - MENTAL IMPAIRMENT [None]
  - PYREXIA [None]
